FAERS Safety Report 18004296 (Version 1)
Quarter: 2020Q3

REPORT INFORMATION
  Report Type: Spontaneous
  Country: FR (occurrence: FR)
  Receive Date: 20200709
  Receipt Date: 20200709
  Transmission Date: 20201103
  Serious: Yes (Death)
  Sender: FDA-Public Use
  Company Number: FR-EISAI MEDICAL RESEARCH-EC-2020-077132

PATIENT
  Age: 65 Year
  Sex: Male
  Weight: 68 kg

DRUGS (2)
  1. LENVIMA [Suspect]
     Active Substance: LENVATINIB
     Indication: MEDULLARY THYROID CANCER
     Route: 048
     Dates: start: 20200410
  2. LEVOTHYROX [Concomitant]
     Active Substance: LEVOTHYROXINE
     Indication: PRODUCT USED FOR UNKNOWN INDICATION
     Dosage: DOSAGE AND FREQUENCY UNKNOWN
     Dates: start: 20150101

REACTIONS (1)
  - Haematemesis [Fatal]

NARRATIVE: CASE EVENT DATE: 20200623
